FAERS Safety Report 25118042 (Version 1)
Quarter: 2025Q1

REPORT INFORMATION
  Report Type: Report from Study
  Country: US (occurrence: US)
  Receive Date: 20250325
  Receipt Date: 20250325
  Transmission Date: 20250409
  Serious: Yes (Other)
  Sender: ABBVIE
  Company Number: US-ABBVIE-6188530

PATIENT
  Age: 52 Year
  Sex: Female

DRUGS (4)
  1. RINVOQ [Suspect]
     Active Substance: UPADACITINIB
     Indication: Product used for unknown indication
     Route: 048
     Dates: start: 20241212
  2. DICLOFENAC [Concomitant]
     Active Substance: DICLOFENAC
     Indication: Thyroid disorder
     Route: 065
     Dates: start: 2020
  3. GLUTAMINE [Concomitant]
     Active Substance: GLUTAMINE
     Indication: Thyroid disorder
     Route: 065
  4. LEFLUNOMIDE [Concomitant]
     Active Substance: LEFLUNOMIDE
     Indication: Thyroid disorder
     Route: 065
     Dates: start: 2020

REACTIONS (2)
  - Back disorder [Recovering/Resolving]
  - Bronchitis [Recovering/Resolving]

NARRATIVE: CASE EVENT DATE: 20250101
